FAERS Safety Report 24157062 (Version 1)
Quarter: 2024Q3

REPORT INFORMATION
  Report Type: Spontaneous
  Country: US (occurrence: US)
  Receive Date: 20240731
  Receipt Date: 20240731
  Transmission Date: 20241017
  Serious: No
  Sender: PFIZER
  Company Number: US-PFIZER INC-202400225582

PATIENT
  Age: 80 Year
  Sex: Male
  Weight: 72.57 kg

DRUGS (2)
  1. PAXLOVID [Interacting]
     Active Substance: NIRMATRELVIR\RITONAVIR
     Indication: COVID-19 treatment
     Dosage: UNK
     Dates: start: 202303
  2. FLONASE [Interacting]
     Active Substance: FLUTICASONE PROPIONATE
     Dosage: UNK

REACTIONS (2)
  - Drug interaction [Unknown]
  - Herpes zoster [Unknown]

NARRATIVE: CASE EVENT DATE: 20230101
